FAERS Safety Report 9612505 (Version 2)
Quarter: 2014Q1

REPORT INFORMATION
  Report Type: Spontaneous
  Country: GB (occurrence: GB)
  Receive Date: 20131010
  Receipt Date: 20140124
  Transmission Date: 20141002
  Serious: Yes (Other)
  Sender: FDA-Public Use
  Company Number: GB-PFIZER INC-2013289799

PATIENT
  Age: 74 Year
  Sex: Male

DRUGS (10)
  1. AMIODARONE HCL [Suspect]
     Indication: ATRIAL FLUTTER
     Dosage: 200 MG, DAILY
     Route: 048
     Dates: start: 20130831, end: 20130919
  2. LACTULOSE [Concomitant]
     Dosage: UNK
  3. ASPIRIN [Concomitant]
     Dosage: UNK
  4. ATORVASTATIN [Concomitant]
     Dosage: UNK
  5. BISOPROLOL [Concomitant]
     Dosage: UNK
  6. EPLERENONE [Concomitant]
     Dosage: UNK
  7. FUROSEMIDE [Concomitant]
     Dosage: 40 MG, 2X/DAY
  8. RAMIPRIL [Concomitant]
     Dosage: 2.5 MG, IN THE MORNING
  9. TICAGRELOR [Concomitant]
     Dosage: UNK
  10. WARFARIN [Concomitant]
     Dosage: UNK

REACTIONS (3)
  - Hypothyroidism [Recovering/Resolving]
  - Orthopnoea [Recovering/Resolving]
  - Hypotension [Recovering/Resolving]
